FAERS Safety Report 21930196 (Version 1)
Quarter: 2023Q1

REPORT INFORMATION
  Report Type: Spontaneous
  Country: US (occurrence: None)
  Receive Date: 20230130
  Receipt Date: 20230130
  Transmission Date: 20230418
  Serious: Yes (Hospitalization)
  Sender: FDA-Public Use
  Company Number: None

PATIENT
  Age: 81 Year
  Sex: Male

DRUGS (1)
  1. AMPHETAMINE\DEXTROAMPHETAMINE [Suspect]
     Active Substance: AMPHETAMINE\DEXTROAMPHETAMINE
     Indication: Depression
     Dosage: OTHER QUANTITY : 1 TAB;?FREQUENCY : DAILY;?
     Route: 048
     Dates: start: 20211029, end: 20220829

REACTIONS (9)
  - Tachycardia [None]
  - Confusional state [None]
  - Fatigue [None]
  - Feeling abnormal [None]
  - Aphasia [None]
  - Dysarthria [None]
  - Chromaturia [None]
  - Memory impairment [None]
  - Blood pressure increased [None]

NARRATIVE: CASE EVENT DATE: 20220826
